FAERS Safety Report 9517647 (Version 1)
Quarter: 2013Q3

REPORT INFORMATION
  Report Type: Spontaneous
  Country: CA (occurrence: CA)
  Receive Date: 20130912
  Receipt Date: 20130912
  Transmission Date: 20140515
  Serious: Yes (Hospitalization)
  Sender: FDA-Public Use
  Company Number: CA-ROCHE-1274087

PATIENT
  Age: 3 Year
  Sex: Female
  Weight: 17 kg

DRUGS (3)
  1. CEFTRIAXONE [Suspect]
     Indication: PRODUCT USED FOR UNKNOWN INDICATION
     Dosage: THERAPY DURATION: 48.0 HOURS
     Route: 030
  2. CEFUROXIME [Suspect]
     Indication: PRODUCT USED FOR UNKNOWN INDICATION
     Dosage: THERAPY DURATION: 24.0 HOURS
     Route: 048
  3. AZITHROMYCIN [Concomitant]
     Route: 048

REACTIONS (2)
  - Rash erythematous [Recovered/Resolved]
  - Rash macular [Recovered/Resolved]
